FAERS Safety Report 25215405 (Version 1)
Quarter: 2025Q2

REPORT INFORMATION
  Report Type: Spontaneous
  Country: US (occurrence: US)
  Receive Date: 20250418
  Receipt Date: 20250418
  Transmission Date: 20250717
  Serious: Yes (Other)
  Sender: AMGEN
  Company Number: US-AMGEN-USASP2025074232

PATIENT
  Age: 33 Year
  Sex: Female

DRUGS (1)
  1. ERENUMAB [Suspect]
     Active Substance: ERENUMAB
     Indication: Migraine
     Route: 065

REACTIONS (8)
  - Oesophagogastroduodenoscopy abnormal [Unknown]
  - Gastritis [Unknown]
  - Duodenitis [Unknown]
  - Impaired gastric emptying [Unknown]
  - Nausea [Unknown]
  - Vomiting [Unknown]
  - Abdominal pain upper [Unknown]
  - Dyspepsia [Unknown]
